FAERS Safety Report 18179409 (Version 8)
Quarter: 2022Q1

REPORT INFORMATION
  Report Type: Spontaneous
  Country: CA (occurrence: None)
  Receive Date: 20200821
  Receipt Date: 20220121
  Transmission Date: 20220423
  Serious: Yes (Other)
  Sender: FDA-Public Use
  Company Number: CA-ROCHE-2583896

PATIENT
  Age: 52 Year
  Sex: Male

DRUGS (68)
  1. SAQUINAVIR [Suspect]
     Active Substance: SAQUINAVIR
     Indication: HIV infection
     Route: 065
  2. SAQUINAVIR [Suspect]
     Active Substance: SAQUINAVIR
     Dosage: THERAPY DURATION: 457.0 DAYS
     Route: 048
  3. ABACAVIR [Suspect]
     Active Substance: ABACAVIR
     Indication: HIV infection
     Route: 065
  4. DARUNAVIR [Suspect]
     Active Substance: DARUNAVIR
     Indication: HIV infection
     Route: 065
  5. DARUNAVIR [Suspect]
     Active Substance: DARUNAVIR
     Indication: Antiretroviral therapy
     Dosage: THERAPY DURATION: 91.0 DAYS
     Route: 048
  6. DIDANOSINE [Suspect]
     Active Substance: DIDANOSINE
     Indication: HIV infection
     Dosage: THERAPY DURATION: 2920.0 DAYS
     Route: 065
  7. LAMIVUDINE [Suspect]
     Active Substance: LAMIVUDINE
     Indication: HIV infection
     Dosage: THERAPY DURATION: 9668.0 DAYS
     Route: 065
  8. LOPINAVIR [Suspect]
     Active Substance: LOPINAVIR
     Indication: HIV infection
     Dosage: THERAPY DURATION: 3141.0 DAYS
     Route: 065
  9. NELFINAVIR [Suspect]
     Active Substance: NELFINAVIR
     Indication: HIV infection
     Route: 065
  10. NELFINAVIR [Suspect]
     Active Substance: NELFINAVIR
     Route: 048
  11. NEVIRAPINE [Suspect]
     Active Substance: NEVIRAPINE
     Indication: HIV infection
     Route: 065
  12. NEVIRAPINE [Suspect]
     Active Substance: NEVIRAPINE
     Dosage: THERAPY DURATION: 2920.0 DAYS
     Route: 048
  13. RITONAVIR [Suspect]
     Active Substance: RITONAVIR
     Indication: HIV infection
     Route: 065
  14. RITONAVIR [Suspect]
     Active Substance: RITONAVIR
     Route: 016
  15. TENOFOVIR [Suspect]
     Active Substance: TENOFOVIR
     Indication: HIV infection
     Dosage: THERAPY DURATION: 2470.0 DAYS
     Route: 048
  16. TENOFOVIR [Suspect]
     Active Substance: TENOFOVIR
     Route: 065
  17. ZIDOVUDINE [Suspect]
     Active Substance: ZIDOVUDINE
     Indication: HIV infection
     Route: 048
  18. ZIDOVUDINE [Suspect]
     Active Substance: ZIDOVUDINE
     Route: 065
  19. CRIXIVAN [Suspect]
     Active Substance: INDINAVIR SULFATE
     Indication: HIV infection
     Route: 048
  20. EFAVIRENZ [Suspect]
     Active Substance: EFAVIRENZ
     Indication: HIV infection
     Route: 048
  21. EFAVIRENZ [Suspect]
     Active Substance: EFAVIRENZ
     Route: 065
  22. INTELENCE [Suspect]
     Active Substance: ETRAVIRINE
     Indication: HIV infection
     Route: 048
  23. ISENTRESS [Suspect]
     Active Substance: RALTEGRAVIR POTASSIUM
     Indication: HIV infection
     Route: 065
  24. ISENTRESS [Suspect]
     Active Substance: RALTEGRAVIR POTASSIUM
     Route: 048
  25. KALETRA [Suspect]
     Active Substance: LOPINAVIR\RITONAVIR
     Indication: HIV infection
     Route: 065
  26. KALETRA [Suspect]
     Active Substance: LOPINAVIR\RITONAVIR
     Route: 048
  27. KALETRA [Suspect]
     Active Substance: LOPINAVIR\RITONAVIR
     Route: 016
  28. NORVIR [Suspect]
     Active Substance: RITONAVIR
     Indication: HIV infection
     Dosage: THERAPY DURATION: 427.0 DAYS
     Route: 065
  29. NORVIR [Suspect]
     Active Substance: RITONAVIR
     Indication: Antiretroviral therapy
  30. RESCRIPTOR [Suspect]
     Active Substance: DELAVIRDINE MESYLATE
     Indication: HIV infection
     Route: 048
  31. SUSTIVA [Suspect]
     Active Substance: EFAVIRENZ
     Indication: HIV infection
     Dosage: THERAPY DURATION: 1189.0 DAYS
     Route: 048
  32. FUZEON [Suspect]
     Active Substance: ENFUVIRTIDE
     Indication: HIV infection
     Route: 058
  33. VIDEX EC [Suspect]
     Active Substance: DIDANOSINE
     Indication: HIV infection
     Route: 048
  34. VIDEX EC [Suspect]
     Active Substance: DIDANOSINE
     Route: 048
  35. VIREAD [Suspect]
     Active Substance: TENOFOVIR DISOPROXIL FUMARATE
     Indication: HIV infection
     Route: 048
  36. ZERIT [Suspect]
     Active Substance: STAVUDINE
     Indication: HIV infection
     Route: 065
  37. ZERIT [Suspect]
     Active Substance: STAVUDINE
     Route: 016
  38. ABACAVIR SULFATE [Suspect]
     Active Substance: ABACAVIR SULFATE
     Indication: HIV infection
     Route: 065
  39. DELAVIRDINE MESYLATE [Suspect]
     Active Substance: DELAVIRDINE MESYLATE
     Indication: HIV infection
     Route: 065
  40. DELAVIRDINE MESYLATE [Suspect]
     Active Substance: DELAVIRDINE MESYLATE
     Route: 048
  41. DELAVIRDINE MESYLATE [Suspect]
     Active Substance: DELAVIRDINE MESYLATE
     Route: 048
  42. ETRAVIRINE [Suspect]
     Active Substance: ETRAVIRINE
     Indication: HIV infection
     Dosage: THERAPY DURATION: 91.0 DAYS
     Route: 048
  43. ETRAVIRINE [Suspect]
     Active Substance: ETRAVIRINE
     Indication: Antiretroviral therapy
     Route: 065
  44. INDINAVIR SULFATE [Suspect]
     Active Substance: INDINAVIR SULFATE
     Indication: HIV infection
     Dosage: THERAPY DURATION: 793.0 DAYS
     Route: 048
  45. RALTEGRAVIR [Suspect]
     Active Substance: RALTEGRAVIR
     Indication: HIV infection
     Route: 048
  46. RALTEGRAVIR [Suspect]
     Active Substance: RALTEGRAVIR
     Route: 065
  47. TENOFOVIR DISOPROXIL FUMARATE [Suspect]
     Active Substance: TENOFOVIR DISOPROXIL FUMARATE
     Indication: HIV infection
     Dosage: THERAPY DURATION: 2470.0 DAYS
     Route: 048
  48. TENOFOVIR DISOPROXIL FUMARATE [Suspect]
     Active Substance: TENOFOVIR DISOPROXIL FUMARATE
     Route: 065
  49. TENOFOVIR DISOPROXIL FUMARATE [Suspect]
     Active Substance: TENOFOVIR DISOPROXIL FUMARATE
     Route: 048
  50. ABACAVIR SUCCINATE [Suspect]
     Active Substance: ABACAVIR SUCCINATE
     Indication: HIV infection
     Route: 065
  51. ABACAVIR SUCCINATE [Suspect]
     Active Substance: ABACAVIR SUCCINATE
     Indication: Antiretroviral therapy
     Route: 048
  52. ABACAVIR SUCCINATE [Suspect]
     Active Substance: ABACAVIR SUCCINATE
     Route: 065
  53. ABACAVIR SUCCINATE [Suspect]
     Active Substance: ABACAVIR SUCCINATE
     Dosage: THERAPY DURATION: 2920.0 DAYS
     Route: 048
  54. ABACAVIR SUCCINATE [Suspect]
     Active Substance: ABACAVIR SUCCINATE
     Route: 048
  55. INDINAVIR [Suspect]
     Active Substance: INDINAVIR
     Indication: HIV infection
     Route: 065
  56. NELFINAVIR MESYLATE [Suspect]
     Active Substance: NELFINAVIR MESYLATE
     Indication: HIV infection
     Route: 048
  57. NELFINAVIR MESYLATE [Suspect]
     Active Substance: NELFINAVIR MESYLATE
     Route: 065
  58. PREZISTA [Suspect]
     Active Substance: DARUNAVIR ETHANOLATE
     Indication: HIV infection
     Route: 048
  59. RALTEGRAVIR POTASSIUM [Suspect]
     Active Substance: RALTEGRAVIR POTASSIUM
     Indication: HIV infection
     Route: 048
  60. RALTEGRAVIR POTASSIUM [Suspect]
     Active Substance: RALTEGRAVIR POTASSIUM
     Indication: Product used for unknown indication
  61. STAVUDINE [Suspect]
     Active Substance: STAVUDINE
     Indication: HIV infection
     Dosage: THERAPY DURATION: 2196.0 DAYS
     Route: 048
  62. VIRAMUNE [Suspect]
     Active Substance: NEVIRAPINE
     Indication: HIV infection
     Route: 065
  63. VIRAMUNE [Suspect]
     Active Substance: NEVIRAPINE
     Route: 048
  64. ZIAGEN [Suspect]
     Active Substance: ABACAVIR SULFATE
     Indication: HIV infection
     Route: 048
  65. ZIAGEN [Suspect]
     Active Substance: ABACAVIR SULFATE
     Indication: Product used for unknown indication
     Route: 065
  66. ZIAGEN [Suspect]
     Active Substance: ABACAVIR SULFATE
     Route: 048
  67. ZIAGEN [Suspect]
     Active Substance: ABACAVIR SULFATE
     Route: 065
  68. VIRACEPT [Suspect]
     Active Substance: NELFINAVIR MESYLATE
     Indication: HIV infection
     Dosage: THERAPY DURATION: 274.0 DAYS
     Route: 065

REACTIONS (9)
  - Diplopia [Unknown]
  - Eyelid ptosis [Unknown]
  - Lipodystrophy acquired [Unknown]
  - Mitochondrial toxicity [Unknown]
  - Progressive external ophthalmoplegia [Unknown]
  - Extraocular muscle paresis [Unknown]
  - Ophthalmoplegia [Unknown]
  - Blood lactic acid increased [Unknown]
  - Dysphagia [Unknown]
